FAERS Safety Report 11108325 (Version 2)
Quarter: 2015Q2

REPORT INFORMATION
  Report Type: Spontaneous
  Country: US (occurrence: US)
  Receive Date: 20150512
  Receipt Date: 20150608
  Transmission Date: 20150821
  Serious: No
  Sender: FDA-Public Use
  Company Number: US-009507513-1505USA003026

PATIENT

DRUGS (2)
  1. ATAZANAVIR [Interacting]
     Active Substance: ATAZANAVIR
  2. PEPCID [Suspect]
     Active Substance: FAMOTIDINE

REACTIONS (1)
  - Drug interaction [Unknown]
